FAERS Safety Report 13340639 (Version 3)
Quarter: 2018Q1

REPORT INFORMATION
  Report Type: Report from Study
  Country: IT (occurrence: IT)
  Receive Date: 20170316
  Receipt Date: 20180301
  Transmission Date: 20180508
  Serious: Yes (Hospitalization, Other)
  Sender: FDA-Public Use
  Company Number: IT-ACCORD-049020

PATIENT
  Age: 70 Year
  Sex: Female
  Weight: 63 kg

DRUGS (3)
  1. CISPLATIN. [Suspect]
     Active Substance: CISPLATIN
     Indication: HEAD AND NECK CANCER
     Dosage: REDUCED TO 50 MG/M^2 AND DISCONTINUED ON THE SAME DAY
     Route: 042
     Dates: start: 20160812, end: 20161010
  2. ERBITUX [Suspect]
     Active Substance: CETUXIMAB
     Indication: HEAD AND NECK CANCER
     Dosage: ALSO 250 MG/M2 FROM 02-SEP-2016
     Route: 042
     Dates: start: 20160812
  3. FLUOROURACIL. [Suspect]
     Active Substance: FLUOROURACIL
     Indication: HEAD AND NECK CANCER
     Dates: start: 20160812, end: 20161010

REACTIONS (7)
  - Skin fissures [Unknown]
  - Vomiting [Recovered/Resolved]
  - Asthenia [Not Recovered/Not Resolved]
  - Skin lesion [Unknown]
  - Mucosal inflammation [Recovered/Resolved]
  - Skin reaction [Recovered/Resolved]
  - Rash [Unknown]

NARRATIVE: CASE EVENT DATE: 20160908
